FAERS Safety Report 4872489-5 (Version None)
Quarter: 2006Q1

REPORT INFORMATION
  Report Type: 
  Country: None (occurrence: None)
  Receive Date: 20060104
  Receipt Date: 20050420
  Transmission Date: 20060701
  Serious: Yes (Other)
  Sender: FDA-Public Use
  Company Number: FR-SANOFI-SYNTHELABO-A02200501108

PATIENT
  Age: 67 Year
  Sex: Male

DRUGS (1)
  1. XATRAL [Suspect]
     Indication: DRUG USE FOR UNKNOWN INDICATION
     Route: 048
     Dates: start: 20001001, end: 20021001

REACTIONS (4)
  - ARRHYTHMIA [None]
  - DIZZINESS [None]
  - MALAISE [None]
  - TEMPORAL LOBE EPILEPSY [None]
